FAERS Safety Report 24047866 (Version 1)
Quarter: 2024Q3

REPORT INFORMATION
  Report Type: Spontaneous
  Country: US (occurrence: US)
  Receive Date: 20240703
  Receipt Date: 20240703
  Transmission Date: 20241017
  Serious: Yes (Other)
  Sender: SANDOZ
  Company Number: US-SANDOZ-SDZ2024US062251

PATIENT
  Sex: Female
  Weight: 99.34 kg

DRUGS (1)
  1. OMNITROPE [Suspect]
     Active Substance: SOMATROPIN
     Indication: Hypopituitarism
     Dosage: 0.4 MG, QD
     Route: 050
     Dates: start: 202404, end: 20240701

REACTIONS (1)
  - Erythema multiforme [Recovering/Resolving]
